FAERS Safety Report 8996252 (Version 1)
Quarter: 2013Q1

REPORT INFORMATION
  Report Type: Report from Study
  Country: JP (occurrence: JP)
  Receive Date: 20130103
  Receipt Date: 20130103
  Transmission Date: 20140127
  Serious: Yes (Other)
  Sender: FDA-Public Use
  Company Number: PHHY2012JP121815

PATIENT
  Age: 71 Year
  Sex: Male

DRUGS (3)
  1. CGP 42446 [Suspect]
     Indication: METASTASES TO BONE
     Dosage: 4 MG, APPROXIMATELY EVERY 4 WEEKS
     Route: 041
     Dates: start: 20071023, end: 20080219
  2. OXYCONTIN [Concomitant]
     Dosage: 20 MG
     Route: 048
     Dates: start: 20080221
  3. OXYCONTIN [Concomitant]
     Dosage: 10 MG
     Route: 048
     Dates: end: 20080325

REACTIONS (1)
  - Delirium [Unknown]
